FAERS Safety Report 15130031 (Version 1)
Quarter: 2018Q3

REPORT INFORMATION
  Report Type: Spontaneous
  Country: NL (occurrence: NL)
  Receive Date: 20180711
  Receipt Date: 20180711
  Transmission Date: 20181010
  Serious: Yes (Life-Threatening, Hospitalization)
  Sender: FDA-Public Use
  Company Number: NL-ASTRAZENECA-2018SE86253

PATIENT
  Age: 61 Year
  Sex: Male
  Weight: 80 kg

DRUGS (9)
  1. METOPROLOL. [Concomitant]
     Active Substance: METOPROLOL
     Dosage: 1DD100MG
  2. MOVICOLON [Concomitant]
     Active Substance: POLYETHYLENE GLYCOL 3350\POTASSIUM CHLORIDE\SODIUM BICARBONATE\SODIUM CHLORIDE
     Dosage: 1DD1SACHET
  3. SIMVASTATIN. [Concomitant]
     Active Substance: SIMVASTATIN
     Dosage: 1DD40MG
     Dates: start: 2016
  4. OXYCODONE [Concomitant]
     Active Substance: OXYCODONE
     Dosage: 4DD5MG
     Dates: start: 20180615
  5. OMEPRAZOL APOTEXTE [Suspect]
     Active Substance: OMEPRAZOLE
     Indication: GASTRIC DISORDER
     Route: 048
     Dates: start: 201312, end: 20180618
  6. AMLODIPINE [Concomitant]
     Active Substance: AMLODIPINE BESYLATE
     Dosage: 1DD5MG
  7. ASCAL [Concomitant]
     Dosage: 1DD80MG
     Dates: start: 2016
  8. METFORMIN [Concomitant]
     Active Substance: METFORMIN HYDROCHLORIDE
     Dosage: 3DD850MG
  9. FENTANYL. [Concomitant]
     Active Substance: FENTANYL
     Dosage: 12MCG/UUR

REACTIONS (4)
  - Tremor [Recovering/Resolving]
  - Hypomagnesaemia [Recovering/Resolving]
  - Hyperlactacidaemia [Recovering/Resolving]
  - Hypokalaemia [Recovering/Resolving]

NARRATIVE: CASE EVENT DATE: 20180618
